FAERS Safety Report 9614905 (Version 1)
Quarter: 2013Q4

REPORT INFORMATION
  Report Type: Spontaneous
  Country: US (occurrence: None)
  Receive Date: 20131009
  Receipt Date: 20131009
  Transmission Date: 20140711
  Serious: Yes (Hospitalization)
  Sender: FDA-Public Use
  Company Number: None

PATIENT
  Age: 65 Year
  Sex: Female
  Weight: 89.2 kg

DRUGS (4)
  1. IFOSFAMIDE [Suspect]
     Dosage: 9225 MG
  2. PACLITAXEL [Suspect]
     Dosage: 260MG
  3. AMLODIPINE [Concomitant]
  4. DIOVAN [Concomitant]

REACTIONS (2)
  - Hypotension [None]
  - Syncope [None]
